FAERS Safety Report 10396242 (Version 1)
Quarter: 2014Q1

REPORT INFORMATION
  Report Type: Spontaneous
  Country: US (occurrence: None)
  Receive Date: 20130124
  Receipt Date: 20130124
  Transmission Date: 20141002
  Serious: Yes (Hospitalization)
  Sender: FDA-Public Use
  Company Number: 2012PROUSA01699

PATIENT
  Age: 72 Year
  Sex: Male
  Weight: 80.3 kg

DRUGS (3)
  1. PROVENGE (SIPULEUCEL-T) SUSPENSION, 250ML [Suspect]
     Indication: PROSTATE CANCER METASTATIC
     Route: 042
     Dates: start: 20120629, end: 20120629
  2. LISINOPRIL (LISINOPRIL) [Concomitant]
  3. LIPTOR (ATORVASTATIN CALCIUM) [Concomitant]

REACTIONS (3)
  - Device related infection [None]
  - Hypokalaemia [None]
  - Catheter site pain [None]
